FAERS Safety Report 24264550 (Version 1)
Quarter: 2024Q3

REPORT INFORMATION
  Report Type: Spontaneous
  Country: CN (occurrence: CN)
  Receive Date: 20240829
  Receipt Date: 20240829
  Transmission Date: 20241017
  Serious: Yes (Life-Threatening)
  Sender: MERCK
  Company Number: CN-009507513-2408CHN009109

PATIENT
  Age: 40 Year
  Sex: Female

DRUGS (3)
  1. KEYTRUDA [Suspect]
     Active Substance: PEMBROLIZUMAB
     Indication: Breast neoplasm
     Dosage: 200 MG, D1, ONCE (REPORTED AS Q21D)
     Route: 041
     Dates: start: 20240717, end: 20240717
  2. CARBOPLATIN [Suspect]
     Active Substance: CARBOPLATIN
     Indication: Breast neoplasm
     Dosage: 600 MG, D1 (AUC 5), ONCE
     Route: 041
     Dates: start: 20240717, end: 20240717
  3. PACLITAXEL [Suspect]
     Active Substance: PACLITAXEL
     Indication: Breast neoplasm
     Dosage: 170 MILLIGRAM (125 MG/ SQUARE METRE), D1?D8, Q21D (Q3W)
     Route: 041
     Dates: start: 20240717, end: 20240724

REACTIONS (4)
  - Neutrophil count decreased [Recovering/Resolving]
  - White blood cell count decreased [Recovering/Resolving]
  - Platelet count decreased [Recovering/Resolving]
  - Haemoglobin decreased [Unknown]

NARRATIVE: CASE EVENT DATE: 20240806
